FAERS Safety Report 9576742 (Version 1)
Quarter: 2013Q4

REPORT INFORMATION
  Report Type: Spontaneous
  Country: US (occurrence: US)
  Receive Date: 20131001
  Receipt Date: 20131001
  Transmission Date: 20140711
  Serious: No
  Sender: FDA-Public Use
  Company Number: US-AMGEN-USASP2013004579

PATIENT
  Age: 44 Year
  Sex: Female
  Weight: 82.99 kg

DRUGS (9)
  1. ENBREL [Suspect]
     Indication: RHEUMATOID ARTHRITIS
     Dosage: 50 MG, QWK
     Route: 058
  2. METHOTREXATE [Concomitant]
     Dosage: 2.5 MG, UNK
     Route: 048
  3. NAPROXEN DELAYED-RELEASE [Concomitant]
     Dosage: 375 MG, UNK
     Route: 048
  4. POTASSIUM [Concomitant]
     Dosage: 95 MG, UNK
     Route: 048
  5. FISH OIL [Concomitant]
     Dosage: UNK
     Route: 048
  6. VITAMIN D                          /00107901/ [Concomitant]
     Dosage: 1000 UNIT, UNK
     Route: 048
  7. YASMIN 28 [Concomitant]
     Dosage: 3-0.03 MG, UNK
     Route: 048
  8. CALCIUM [Concomitant]
     Dosage: 500 MG, UNK
     Route: 048
  9. FOLIC ACID [Concomitant]
     Dosage: UNK
     Route: 048

REACTIONS (1)
  - Influenza like illness [Unknown]
